FAERS Safety Report 6326752-1 (Version None)
Quarter: 2009Q3

REPORT INFORMATION
  Report Type: 
  Country: None (occurrence: None)
  Receive Date: 20090825
  Receipt Date: 20090820
  Transmission Date: 20100115
  Serious: Yes (Death, Other)
  Sender: FDA-Public Use
  Company Number: PHHY2009PE35078

PATIENT
  Sex: Male

DRUGS (2)
  1. EXELON [Suspect]
     Dosage: 5 MG, UNK
     Route: 062
     Dates: start: 20090401
  2. METFORMIN HCL [Concomitant]
     Dosage: UNK
     Dates: start: 19960101

REACTIONS (2)
  - DEATH [None]
  - PNEUMONIA [None]
